FAERS Safety Report 4277584-X (Version None)
Quarter: 2004Q1

REPORT INFORMATION
  Report Type: 
  Country: None (occurrence: None)
  Receive Date: 20040121
  Receipt Date: 20040121
  Transmission Date: 20041129
  Serious: Yes (Hospitalization)
  Sender: FDA-Public Use
  Company Number: None

PATIENT
  Age: 4 Year
  Sex: Female
  Weight: 17 kg

DRUGS (4)
  1. THIOGUANINE [Suspect]
     Indication: ACUTE LYMPHOCYTIC LEUKAEMIA
     Dosage: 60MG/M2/DAY PO
     Route: 048
     Dates: start: 20040106, end: 20040115
  2. BACTRIM [Concomitant]
  3. ZOFRAN [Concomitant]
  4. CYTARABINE [Concomitant]

REACTIONS (8)
  - ABDOMINAL PAIN [None]
  - ASCITES [None]
  - GALLBLADDER DISORDER [None]
  - HEPATOSPLENOMEGALY [None]
  - NEUTROPENIA [None]
  - PYREXIA [None]
  - THROMBOCYTOPENIA [None]
  - VENOOCCLUSIVE DISEASE [None]
